FAERS Safety Report 8643898 (Version 2)
Quarter: 2012Q4

REPORT INFORMATION
  Report Type: 
  Country: US (occurrence: US)
  Receive Date: 20120629
  Receipt Date: 20120829
  Transmission Date: 20130627
  Serious: Yes (Other)
  Sender: FDA-Public Use
  Company Number: US-BRISTOL-MYERS SQUIBB COMPANY-16700858

PATIENT
  Age: 64 Year
  Sex: Female
  Weight: 56.69 kg

DRUGS (10)
  1. KOMBIGLYZE XR [Suspect]
     Indication: TYPE 2 DIABETES MELLITUS
     Dosage: 1 DF = 1000/2.5. 2 tabs daily
     Route: 048
     Dates: start: 20120614, end: 20120616
  2. LIPITOR [Concomitant]
  3. LISINOPRIL [Concomitant]
  4. BABY ASPIRIN [Concomitant]
  5. ASPIRIN [Concomitant]
  6. NIMESULIDE [Concomitant]
  7. CEPHALOSPORIN [Concomitant]
  8. DEXTRAN [Concomitant]
  9. INSULIN [Concomitant]
  10. CONTRAST AGENT [Concomitant]

REACTIONS (1)
  - Angioedema [Recovered/Resolved]
